FAERS Safety Report 9060934 (Version 1)
Quarter: 2013Q1

REPORT INFORMATION
  Report Type: Spontaneous
  Country: BR (occurrence: BR)
  Receive Date: 20130213
  Receipt Date: 20130213
  Transmission Date: 20140127
  Serious: Yes (Other)
  Sender: FDA-Public Use
  Company Number: BR-AMGEN-BRASP2013009461

PATIENT
  Age: 57 Year
  Sex: Female
  Weight: 54 kg

DRUGS (4)
  1. ENBREL [Suspect]
     Indication: RHEUMATOID ARTHRITIS
     Dosage: 50 MG, WEEKLY
     Route: 058
     Dates: start: 201112, end: 201210
  2. SOTALOL HYDROCHLORIDE [Concomitant]
     Dosage: UNK UNK, UNK
  3. PREDNISOLONE [Concomitant]
     Dosage: UNK UNK, UNK
  4. PIROXICAM [Concomitant]
     Dosage: UNK UNK, UNK

REACTIONS (3)
  - Immunodeficiency [Unknown]
  - Genital herpes [Unknown]
  - Oral herpes [Unknown]
